FAERS Safety Report 10551204 (Version 1)
Quarter: 2014Q4

REPORT INFORMATION
  Report Type: Spontaneous
  Country: IT (occurrence: None)
  Receive Date: 20141027
  Receipt Date: 20141027
  Transmission Date: 20150529
  Serious: Yes (Hospitalization)
  Sender: FDA-Public Use
  Company Number: NL01PV14.37696

PATIENT
  Age: 75 Year
  Sex: Female

DRUGS (2)
  1. UNKNOWN (TAMSULOSIN) UNKNOWN [Suspect]
     Active Substance: TAMSULOSIN
     Route: 048
     Dates: start: 20140927
  2. CISTALGAN (FLAVOXATE HYDROCHLORIDE, PROPYPHENAZONE) [Concomitant]

REACTIONS (3)
  - Hyperhidrosis [None]
  - Malaise [None]
  - Syncope [None]

NARRATIVE: CASE EVENT DATE: 20140928
